FAERS Safety Report 8429463-1 (Version None)
Quarter: 2012Q2

REPORT INFORMATION
  Report Type: 
  Country: None (occurrence: None)
  Receive Date: 20120516
  Receipt Date: 20120503
  Transmission Date: 20120825
  Serious: Yes (Hospitalization, Other)
  Sender: FDA-Public Use
  Company Number: 2012PROUSA01279

PATIENT
  Age: 66 Year
  Sex: Male
  Weight: 67.1 kg

DRUGS (9)
  1. LUPRON [Concomitant]
  2. PROVENGE [Suspect]
     Indication: PROSTATE CANCER METASTATIC
     Dosage: 250 ML, SINGLE, INTRAVENOUS
     Route: 042
     Dates: start: 20120329, end: 20120329
  3. MS CONTIN [Suspect]
     Indication: INADEQUATE ANALGESIA
     Dosage: 2 MG, PRN, ORAL
     Route: 048
     Dates: start: 20120329, end: 20120329
  4. MS CONTIN [Suspect]
     Indication: PAIN
     Dosage: 2 MG, PRN, ORAL
     Route: 048
     Dates: start: 20120329, end: 20120329
  5. DIGESTIVE ENZYMES (BETAINE HYDROCHLORIDE, BROMELAINS, CELLULASE, PANCR [Concomitant]
  6. MULTIVITAMIN (ASCORBI ACID, CALCIUM PANTOTYHENATE, ERGOCALCIFEROL, NIC [Concomitant]
  7. CALCIUM CARBONATE [Concomitant]
  8. VICODIN [Concomitant]
  9. OMEPRAZOLE [Concomitant]

REACTIONS (16)
  - BACK PAIN [None]
  - HYPOXIA [None]
  - DELIRIUM [None]
  - MUSCULAR WEAKNESS [None]
  - LYMPHANGIOSIS CARCINOMATOSA [None]
  - SINUS TACHYCARDIA [None]
  - ARTHRALGIA [None]
  - ASTHENIA [None]
  - GENERAL PHYSICAL HEALTH DETERIORATION [None]
  - HYPERGLYCAEMIA [None]
  - DISORIENTATION [None]
  - ABASIA [None]
  - ANAEMIA [None]
  - METASTASES TO CENTRAL NERVOUS SYSTEM [None]
  - THROMBOCYTOPENIA [None]
  - ATELECTASIS [None]
